FAERS Safety Report 11295834 (Version 1)
Quarter: 2015Q3

REPORT INFORMATION
  Report Type: Spontaneous
  Country: US (occurrence: US)
  Receive Date: 20150722
  Receipt Date: 20150722
  Transmission Date: 20151125
  Serious: No
  Sender: FDA-Public Use
  Company Number: US-ELI_LILLY_AND_COMPANY-US200811000400

PATIENT
  Sex: Female

DRUGS (1)
  1. EVISTA [Suspect]
     Active Substance: RALOXIFENE HYDROCHLORIDE
     Indication: PROPHYLAXIS
     Dosage: 60 MG, UNKNOWN
     Route: 065
     Dates: start: 200801

REACTIONS (12)
  - Local swelling [Unknown]
  - Adverse event [Unknown]
  - Gastrooesophageal reflux disease [Recovering/Resolving]
  - Throat irritation [Unknown]
  - Confusional state [Unknown]
  - Contusion [Unknown]
  - Cough [Unknown]
  - Rash [Not Recovered/Not Resolved]
  - Oesophageal food impaction [Unknown]
  - Lymphadenopathy [Unknown]
  - Back pain [Unknown]
  - Breast calcifications [Unknown]
